FAERS Safety Report 6206879-5 (Version None)
Quarter: 2009Q2

REPORT INFORMATION
  Report Type: 
  Country: None (occurrence: None)
  Receive Date: 20090528
  Receipt Date: 20090519
  Transmission Date: 20091009
  Serious: Yes (Hospitalization, Disabling)
  Sender: FDA-Public Use
  Company Number: PL-AVENTIS-200915257GDDC

PATIENT
  Age: 50 Year
  Sex: Male
  Weight: 76 kg

DRUGS (4)
  1. ARAVA [Suspect]
     Indication: RHEUMATOID ARTHRITIS
     Route: 048
     Dates: start: 20071214
  2. TREXAN (METHOTREXATE) [Concomitant]
     Indication: RHEUMATOID ARTHRITIS
     Route: 048
  3. MEDROL [Concomitant]
     Indication: RHEUMATOID ARTHRITIS
     Route: 048
  4. GLUCOBAY [Concomitant]
     Route: 048

REACTIONS (3)
  - BURSA INJURY [None]
  - DRUG INEFFECTIVE [None]
  - PERONEAL NERVE INJURY [None]
